FAERS Safety Report 9463217 (Version 2)
Quarter: 2014Q1

REPORT INFORMATION
  Report Type: Spontaneous
  Country: PL (occurrence: PL)
  Receive Date: 20130818
  Receipt Date: 20140113
  Transmission Date: 20141002
  Serious: Yes (Other)
  Sender: FDA-Public Use
  Company Number: PHHY2013PL086677

PATIENT
  Age: 38 Year
  Sex: Male

DRUGS (9)
  1. ACITRETIN [Suspect]
     Indication: LICHEN MYXOEDEMATOSUS
     Dosage: 75 MG DAILY
     Route: 048
  2. ACITRETIN [Suspect]
     Dosage: 50 MG DAILY
     Route: 048
  3. METHYLPREDNISOLONE [Suspect]
     Indication: LICHEN MYXOEDEMATOSUS
     Dosage: 48 MG/32 MG ALTERNATIVELY
  4. METHYLPREDNISOLONE [Suspect]
     Dosage: 16 MG/8 MG ALTERNATIVELY
  5. METHYLPREDNISOLONE [Suspect]
     Dosage: 24 MG/16 MG ALTERNATIVELY
  6. HYDROCORTISONE [Suspect]
     Indication: LICHEN MYXOEDEMATOSUS
     Dosage: 200 MG, BID FOR 3 DAYS
     Route: 042
  7. HYDROCORTISONE [Suspect]
     Dosage: 200 MG, QD FOR 6 DAYS
     Route: 042
  8. PREDNISOLONE [Suspect]
     Indication: LICHEN MYXOEDEMATOSUS
     Route: 048
  9. ANTIHISTAMINES [Concomitant]
     Indication: LICHEN MYXOEDEMATOSUS
     Route: 048

REACTIONS (5)
  - Hypercholesterolaemia [Unknown]
  - Hypertriglyceridaemia [Unknown]
  - Hyperglycaemia [Unknown]
  - Disease recurrence [Unknown]
  - Drug ineffective [Unknown]
